FAERS Safety Report 14852683 (Version 1)
Quarter: 2018Q2

REPORT INFORMATION
  Report Type: Spontaneous
  Country: IT (occurrence: IT)
  Receive Date: 20180507
  Receipt Date: 20180507
  Transmission Date: 20180711
  Serious: Yes (Hospitalization)
  Sender: FDA-Public Use
  Company Number: IT-AUROBINDO-AUR-APL-2018-024050

PATIENT
  Sex: Male

DRUGS (1)
  1. IRBESARTAN TABLETS [Suspect]
     Active Substance: IRBESARTAN
     Indication: HYPERTENSION
     Dosage: 150 MILLIGRAM, DAILY
     Route: 048
     Dates: start: 20170101, end: 20171003

REACTIONS (3)
  - Presyncope [Unknown]
  - Hyperhidrosis [Unknown]
  - Malaise [Unknown]

NARRATIVE: CASE EVENT DATE: 20171003
